FAERS Safety Report 8769511 (Version 1)
Quarter: 2012Q4

REPORT INFORMATION
  Report Type: 
  Country: BR (occurrence: BR)
  Receive Date: 20120905
  Receipt Date: 20120905
  Transmission Date: 20130627
  Serious: Yes (Hospitalization, Other)
  Sender: FDA-Public Use
  Company Number: PHHY2012BR076104

PATIENT
  Age: 81 Year
  Sex: Female
  Weight: 70 kg

DRUGS (3)
  1. EXELON PATCH [Suspect]
     Indication: DEMENTIA ALZHEIMER^S TYPE
     Dosage: 1 DF, daily
     Route: 062
     Dates: start: 2007, end: 2011
  2. SIFROL [Concomitant]
     Indication: PARKINSON^S DISEASE
     Dosage: 2 DF (0.25mg) daily
     Route: 048
     Dates: start: 2007
  3. AAS [Concomitant]
     Indication: BLOOD DISORDER
     Dosage: 2 DF (100mg) daily
     Route: 048
     Dates: start: 2004

REACTIONS (6)
  - Cerebral ischaemia [Recovered/Resolved with Sequelae]
  - Movement disorder [Unknown]
  - Speech disorder [Unknown]
  - Dysphagia [Unknown]
  - Arrhythmia [Unknown]
  - Depression [Not Recovered/Not Resolved]
